FAERS Safety Report 21459395 (Version 6)
Quarter: 2023Q1

REPORT INFORMATION
  Report Type: Report from Study
  Country: TW (occurrence: TW)
  Receive Date: 20221014
  Receipt Date: 20230206
  Transmission Date: 20230417
  Serious: Yes (Death, Hospitalization, Other)
  Sender: FDA-Public Use
  Company Number: TW-SA-SAC20220915000644

PATIENT
  Age: 20 Year
  Sex: Male

DRUGS (2)
  1. IDURSULFASE [Suspect]
     Active Substance: IDURSULFASE
     Indication: Mucopolysaccharidosis II
     Dosage: 15 MILLIGRAM, 1/WEEK
     Route: 041
     Dates: start: 20220904
  2. IMIGLUCERASE [Suspect]
     Active Substance: IMIGLUCERASE
     Indication: Mucopolysaccharidosis II
     Dosage: 15 GRAM, 1/WEEK
     Route: 041
     Dates: start: 20220904

REACTIONS (9)
  - Pneumonia [Fatal]
  - Pyrexia [Fatal]
  - Vascular graft infection [Not Recovered/Not Resolved]
  - Oxygen saturation decreased [Not Recovered/Not Resolved]
  - Central venous catheter removal [Recovered/Resolved]
  - Infection [Not Recovered/Not Resolved]
  - Product availability issue [Unknown]
  - Incorrect dose administered [Unknown]
  - Product quality issue [Unknown]

NARRATIVE: CASE EVENT DATE: 20220101
